FAERS Safety Report 10578515 (Version 1)
Quarter: 2014Q4

REPORT INFORMATION
  Report Type: Spontaneous
  Country: US (occurrence: None)
  Receive Date: 20141111
  Receipt Date: 20141111
  Transmission Date: 20150529
  Serious: No
  Sender: FDA-Public Use
  Company Number: None

PATIENT
  Age: 83 Year
  Weight: 86.18 kg

DRUGS (1)
  1. SCOPOLAMINE [Suspect]
     Active Substance: SCOPOLAMINE
     Indication: PROPHYLAXIS AGAINST MOTION SICKNESS
     Dosage: 1 PATCH; ONE TIME ONLY; APPLIED TO A SURFACE, USUALLY THE SKIN
     Route: 061
     Dates: start: 20141012, end: 20141013

REACTIONS (12)
  - Disorientation [None]
  - Miosis [None]
  - Blood pressure increased [None]
  - Hallucination [None]
  - Mydriasis [None]
  - Nightmare [None]
  - Paranoia [None]
  - Dysarthria [None]
  - Psychomotor hyperactivity [None]
  - Thirst [None]
  - Amnestic disorder [None]
  - Delusion [None]

NARRATIVE: CASE EVENT DATE: 20141013
